FAERS Safety Report 5505531-9 (Version None)
Quarter: 2007Q4

REPORT INFORMATION
  Report Type: 
  Country: None (occurrence: None)
  Receive Date: 20071102
  Receipt Date: 20071026
  Transmission Date: 20080405
  Serious: Yes (Other)
  Sender: FDA-Public Use
  Company Number: US-SHR-US-2007-001912

PATIENT
  Age: 55 Year
  Sex: Female

DRUGS (2)
  1. BETASERON [Suspect]
     Indication: RELAPSING-REMITTING MULTIPLE SCLEROSIS
     Route: 058
     Dates: start: 20050418, end: 20060306
  2. BETASERON [Suspect]
     Route: 058
     Dates: start: 20060320, end: 20060929

REACTIONS (5)
  - BODY TEMPERATURE FLUCTUATION [None]
  - DEPRESSION [None]
  - MALAISE [None]
  - MULTIPLE SCLEROSIS [None]
  - SYNCOPE [None]
